FAERS Safety Report 7500639-0 (Version None)
Quarter: 2011Q2

REPORT INFORMATION
  Report Type: 
  Country: None (occurrence: None)
  Receive Date: 20110524
  Receipt Date: 20110517
  Transmission Date: 20111010
  Serious: Yes (Other)
  Sender: FDA-Public Use
  Company Number: US-PFIZER INC-HQWYE707104AUG05

PATIENT
  Sex: Female
  Weight: 132 kg

DRUGS (9)
  1. PRILOSEC [Concomitant]
     Indication: GASTRIC DISORDER
     Dosage: UNK
     Dates: start: 19980101, end: 20020101
  2. K-LYTE [Concomitant]
     Indication: MINERAL SUPPLEMENTATION
     Dosage: UNK
     Dates: start: 19940101
  3. INDERAL [Concomitant]
     Indication: ATRIAL FIBRILLATION
     Dosage: UNK
     Dates: start: 20000101
  4. PROVERA [Suspect]
     Indication: HORMONE REPLACEMENT THERAPY
     Dosage: UNK
     Route: 048
     Dates: start: 19940601, end: 20010801
  5. WARFARIN SODIUM [Concomitant]
     Indication: CARDIAC DISORDER
     Dosage: UNK
     Dates: start: 20000101
  6. MEDROXYPROGESTERONE ACETATE [Suspect]
     Indication: HORMONE REPLACEMENT THERAPY
     Dosage: UNK
     Route: 048
     Dates: start: 19940601, end: 20010801
  7. MICRO-K [Concomitant]
     Indication: MINERAL SUPPLEMENTATION
     Dosage: UNK
     Dates: start: 19940101, end: 20020101
  8. PREMARIN [Suspect]
     Indication: HORMONE REPLACEMENT THERAPY
     Dosage: UNK
     Route: 048
     Dates: start: 19940601, end: 20010801
  9. ZYLOPRIM [Concomitant]
     Indication: GOUT
     Dosage: UNK
     Dates: start: 19980101

REACTIONS (1)
  - BREAST CANCER [None]
